FAERS Safety Report 5414054-7 (Version None)
Quarter: 2007Q3

REPORT INFORMATION
  Report Type: 
  Country: None (occurrence: None)
  Receive Date: 20070814
  Receipt Date: 20070803
  Transmission Date: 20080115
  Serious: Yes (Other)
  Sender: FDA-Public Use
  Company Number: GB-PFIZER INC-2007065609

PATIENT
  Age: 41 Year
  Sex: Female

DRUGS (1)
  1. VARENICLINE TABLETS [Suspect]
     Route: 048
     Dates: start: 20070608, end: 20070627

REACTIONS (1)
  - POLYMENORRHOEA [None]
